FAERS Safety Report 6157730-3 (Version None)
Quarter: 2009Q2

REPORT INFORMATION
  Report Type: 
  Country: None (occurrence: None)
  Receive Date: 20090414
  Receipt Date: 20090408
  Transmission Date: 20091009
  Serious: Yes (Hospitalization, Other)
  Sender: FDA-Public Use
  Company Number: FEI2009-0771

PATIENT
  Age: 33 Year
  Sex: Female

DRUGS (1)
  1. COPPER T380A (INTRAUTERINE CONTRACEPTIVES) (UTERINE) [Suspect]
     Indication: CONTRACEPTION
     Dosage: INTRA UTERINE
     Route: 015

REACTIONS (12)
  - ABDOMINAL PAIN [None]
  - AMNIOCENTESIS ABNORMAL [None]
  - DRUG EXPOSURE DURING PREGNANCY [None]
  - GASTROINTESTINAL INJURY [None]
  - INTRA-UTERINE DEATH [None]
  - IUD MIGRATION [None]
  - OLIGOHYDRAMNIOS [None]
  - PREMATURE RUPTURE OF MEMBRANES [None]
  - RETAINED PLACENTA OR MEMBRANES [None]
  - UNINTENDED PREGNANCY [None]
  - UTERINE CONTRACTIONS DURING PREGNANCY [None]
  - VAGINAL HAEMORRHAGE [None]
